FAERS Safety Report 15941785 (Version 1)
Quarter: 2019Q1

REPORT INFORMATION
  Report Type: Spontaneous
  Country: US (occurrence: US)
  Receive Date: 20190210
  Receipt Date: 20190210
  Transmission Date: 20190417
  Serious: Yes (Hospitalization)
  Sender: FDA-Public Use
  Company Number: None

PATIENT
  Age: 17 Year
  Sex: Female
  Weight: 47.25 kg

DRUGS (7)
  1. ASHWAGHANDA AND MAGNESIUM [Concomitant]
  2. VITAMIN D3 [Concomitant]
     Active Substance: CHOLECALCIFEROL
  3. SJULLCAP [Concomitant]
  4. MELANTONIN [Concomitant]
  5. LEMONBALM [Concomitant]
  6. HEMAGEN8CS - IRON SUPPLEMENT [Concomitant]
  7. FERRIC CARBOXYMALTOSE INJECTION: INJECTAFER [Suspect]
     Active Substance: FERRIC CARBOXYMALTOSE
     Indication: IRON DEFICIENCY
     Dosage: ?          QUANTITY:1 INFUSION;OTHER FREQUENCY:1 INFUSION;?
     Route: 042

REACTIONS (10)
  - Dizziness [None]
  - Haemorrhage [None]
  - Hot flush [None]
  - Abdominal pain [None]
  - Hypertension [None]
  - Hypersensitivity [None]
  - Tremor [None]
  - Asthenia [None]
  - Infusion related reaction [None]
  - Fatigue [None]

NARRATIVE: CASE EVENT DATE: 20190206
